FAERS Safety Report 4533254-1 (Version None)
Quarter: 2004Q4

REPORT INFORMATION
  Report Type: 
  Country: None (occurrence: None)
  Receive Date: 20041221
  Receipt Date: 20041210
  Transmission Date: 20050328
  Serious: Yes (Hospitalization)
  Sender: FDA-Public Use
  Company Number: GR-ABBOTT-04P-066-0283045-00

PATIENT
  Age: 58 Year
  Sex: Female

DRUGS (7)
  1. KLARICID [Suspect]
     Indication: UPPER RESPIRATORY TRACT INFECTION
     Route: 048
     Dates: start: 20041201, end: 20041205
  2. GLICLAZIDE [Concomitant]
     Indication: DIABETES MELLITUS NON-INSULIN-DEPENDENT
     Route: 048
  3. METFORMIN HCL [Concomitant]
     Indication: DIABETES MELLITUS NON-INSULIN-DEPENDENT
     Route: 048
  4. NEBIVOLOL HYDROCHLORIDE [Concomitant]
     Indication: HYPERTENSION
     Route: 048
     Dates: end: 20041201
  5. EPROSARTAN [Concomitant]
     Indication: HYPERTENSION
     Route: 048
     Dates: end: 20041201
  6. VARNIDIPINE [Concomitant]
     Indication: HYPERTENSION
     Route: 048
     Dates: end: 20041201
  7. ATORVASTATIN [Concomitant]
     Indication: DYSLIPIDAEMIA
     Route: 048

REACTIONS (3)
  - DIZZINESS [None]
  - HYPERHIDROSIS [None]
  - SINUS BRADYCARDIA [None]
